FAERS Safety Report 16271488 (Version 1)
Quarter: 2019Q2

REPORT INFORMATION
  Report Type: Spontaneous
  Country: NO (occurrence: NO)
  Receive Date: 20190503
  Receipt Date: 20190503
  Transmission Date: 20190711
  Serious: Yes (Hospitalization, Disabling)
  Sender: FDA-Public Use
  Company Number: NO-PFIZER INC-2019185136

PATIENT
  Age: 74 Year
  Sex: Female

DRUGS (5)
  1. AMLODIPIN [Concomitant]
     Active Substance: AMLODIPINE BESYLATE
  2. METHOTREXATE SODIUM. [Suspect]
     Active Substance: METHOTREXATE SODIUM
     Indication: RHEUMATOID ARTHRITIS
     Dosage: UNK
     Dates: start: 20161010, end: 20170508
  3. SOMAC [Concomitant]
     Active Substance: PANTOPRAZOLE SODIUM
  4. RENITEC COMP [Concomitant]
     Active Substance: ENALAPRIL MALEATE\HYDROCHLOROTHIAZIDE
  5. EMCONCOR [Concomitant]
     Active Substance: BISOPROLOL FUMARATE

REACTIONS (6)
  - Listless [Unknown]
  - Dyspnoea [Not Recovered/Not Resolved]
  - Bedridden [Unknown]
  - Decreased appetite [Unknown]
  - Pulmonary toxicity [Not Recovered/Not Resolved]
  - Oropharyngeal pain [Unknown]

NARRATIVE: CASE EVENT DATE: 20161215
